FAERS Safety Report 5146976-9 (Version None)
Quarter: 2006Q4

REPORT INFORMATION
  Report Type: 
  Country: None (occurrence: None)
  Receive Date: 20061109
  Receipt Date: 20061030
  Transmission Date: 20070319
  Serious: Yes (Hospitalization)
  Sender: FDA-Public Use
  Company Number: US-ELI_LILLY_AND_COMPANY-US200610005471

PATIENT
  Age: 73 Year
  Sex: Female

DRUGS (1)
  1. FORTEO [Suspect]
     Indication: OSTEOARTHRITIS
     Dosage: UNK, UNK
     Dates: start: 20050101, end: 20051001

REACTIONS (3)
  - ANOREXIA [None]
  - NAUSEA [None]
  - SPINAL OPERATION [None]
